FAERS Safety Report 8738740 (Version 2)
Quarter: 2013Q4

REPORT INFORMATION
  Report Type: Spontaneous
  Country: US (occurrence: US)
  Receive Date: 20120823
  Receipt Date: 20131101
  Transmission Date: 20140711
  Serious: No
  Sender: FDA-Public Use
  Company Number: US-009507513-1208USA000164

PATIENT
  Age: 21 Year
  Sex: Female

DRUGS (1)
  1. IMPLANON [Suspect]
     Indication: CONTRACEPTION
     Dosage: UNK
     Dates: start: 20100412

REACTIONS (5)
  - Menorrhagia [Unknown]
  - Device difficult to use [Not Recovered/Not Resolved]
  - Device dislocation [Not Recovered/Not Resolved]
  - Device difficult to use [Not Recovered/Not Resolved]
  - Device difficult to use [Not Recovered/Not Resolved]
